FAERS Safety Report 21944119 (Version 2)
Quarter: 2023Q1

REPORT INFORMATION
  Report Type: Report from Study
  Country: GB (occurrence: GB)
  Receive Date: 20230202
  Receipt Date: 20230211
  Transmission Date: 20230418
  Serious: Yes (Death)
  Sender: FDA-Public Use
  Company Number: GB-CELLTRION INC.-2022GB016693

PATIENT

DRUGS (23)
  1. BEVACIZUMAB [Suspect]
     Active Substance: BEVACIZUMAB
     Indication: Hepatocellular carcinoma
     Dosage: 1200 MG
     Route: 042
     Dates: start: 20211125
  2. ATEZOLIZUMAB [Suspect]
     Active Substance: ATEZOLIZUMAB
     Indication: Hepatocellular carcinoma
     Dosage: 1200 MG
     Route: 042
     Dates: start: 20211125
  3. SODIUM PHOSPHATE, MONOBASIC [Concomitant]
     Active Substance: SODIUM PHOSPHATE, MONOBASIC
     Dosage: (DOSE: 1), AS NECESSARY
     Dates: start: 20220311
  4. CARVEDILOL [Concomitant]
     Active Substance: CARVEDILOL
     Dosage: (DOSE: 1) DRUG IS NO LONGER ADMINISTERED.
     Dates: start: 20211112, end: 20220110
  5. CARVEDILOL [Concomitant]
     Active Substance: CARVEDILOL
     Dosage: (DOSE: 2) QD
     Dates: start: 20220110
  6. CHLORHEXIDINE GLUCONATE [Concomitant]
     Active Substance: CHLORHEXIDINE GLUCONATE
     Dosage: (DOSE: 1), AS NECESSARY
     Dates: start: 20220201
  7. DEXAMETHASONE [Concomitant]
     Active Substance: DEXAMETHASONE
     Indication: Decreased appetite
     Dosage: 2 MG, QD
     Dates: start: 20220521, end: 20220604
  8. FOLIC ACID [Concomitant]
     Active Substance: FOLIC ACID
     Dosage: (DOSE: 1) QD
     Dates: start: 20140331
  9. LENVATINIB [Concomitant]
     Active Substance: LENVATINIB
     Indication: Hepatocellular carcinoma
     Dosage: 4 MG, QD
     Dates: start: 20220715, end: 20221101
  10. LENVATINIB [Concomitant]
     Active Substance: LENVATINIB
     Dosage: 4 MG, QD
     Dates: start: 20220715, end: 20220830
  11. LENVATINIB [Concomitant]
     Active Substance: LENVATINIB
     Dosage: UNK
     Dates: start: 20220715
  12. LEVOTHYROXINE [Concomitant]
     Active Substance: LEVOTHYROXINE
     Dosage: ONGOING: YES (DOSE: 2), QD
     Dates: start: 20220107
  13. LEVOTHYROXINE [Concomitant]
     Active Substance: LEVOTHYROXINE
     Dosage: (DOSE: 1), QD
     Dates: start: 20210526, end: 20220107
  14. LEVOTHYROXINE [Concomitant]
     Active Substance: LEVOTHYROXINE
     Dosage: (DOSE: 1) QD
     Dates: start: 20210107
  15. LEVOTHYROXINE [Concomitant]
     Active Substance: LEVOTHYROXINE
     Dosage: (DOSE: 1)
     Dates: start: 20210526, end: 20220107
  16. LOPERAMIDE [Concomitant]
     Active Substance: LOPERAMIDE
     Dosage: (DOSE: 2), QD
     Dates: start: 20150106
  17. ACETAMINOPHEN [Concomitant]
     Active Substance: ACETAMINOPHEN
     Indication: Pain
     Dosage: AS NECESSARY
     Dates: start: 20220311
  18. SORAFENIB [Concomitant]
     Active Substance: SORAFENIB
     Indication: Hepatocellular carcinoma
     Dosage: 400 MG, QD
     Dates: start: 20220617, end: 20220622
  19. SORAFENIB [Concomitant]
     Active Substance: SORAFENIB
     Indication: Disease progression
  20. SORAFENIB [Concomitant]
     Active Substance: SORAFENIB
     Indication: Hepatocellular carcinoma
     Dosage: UNK
     Dates: start: 20220617, end: 20220622
  21. SORAFENIB [Concomitant]
     Active Substance: SORAFENIB
     Indication: Disease progression
  22. THIAMINE [Concomitant]
     Active Substance: THIAMINE
     Dosage: (DOSE: 2) QD
     Dates: start: 20100413
  23. NIACINAMIDE\PYRIDOXINE HYDROCHLORIDE\RIBOFLAVIN\THIAMINE HYDROCHLORIDE [Concomitant]
     Active Substance: NIACINAMIDE\PYRIDOXINE HYDROCHLORIDE\RIBOFLAVIN\THIAMINE HYDROCHLORIDE
     Dosage: (DOSE: 1) QD
     Dates: start: 20080902

REACTIONS (7)
  - Death [Fatal]
  - Gingival pain [Not Recovered/Not Resolved]
  - Arthralgia [Recovered/Resolved]
  - Dry mouth [Not Recovered/Not Resolved]
  - Toothache [Not Recovered/Not Resolved]
  - Mucosal inflammation [Not Recovered/Not Resolved]
  - Off label use [Unknown]

NARRATIVE: CASE EVENT DATE: 20220110
